FAERS Safety Report 4635716-5 (Version None)
Quarter: 2005Q2

REPORT INFORMATION
  Report Type: 
  Country: None (occurrence: None)
  Receive Date: 20050413
  Receipt Date: 20050405
  Transmission Date: 20051028
  Serious: Yes (Life-Threatening)
  Sender: FDA-Public Use
  Company Number: 2005UW04779

PATIENT
  Age: 64 Year
  Sex: Male
  Weight: 109.7705 kg

DRUGS (12)
  1. IRESSA [Suspect]
     Indication: COLON CANCER METASTATIC
     Dosage: 250 MG DAILY PO
     Route: 048
     Dates: start: 20040412
  2. FOLFIRI [Suspect]
     Indication: COLON CANCER METASTATIC
     Dates: start: 20040412
  3. AMBIEN [Concomitant]
  4. ATENOLOL [Concomitant]
  5. ATIVAN [Concomitant]
  6. CLEOCIN T [Concomitant]
  7. DYAZIDE [Concomitant]
  8. FOLIC ACID [Concomitant]
  9. LISINOPRIL [Concomitant]
  10. MULTI-VITAMINS [Concomitant]
  11. PEPCID AC [Concomitant]
  12. ZOFRAN [Concomitant]

REACTIONS (5)
  - ANXIETY [None]
  - BLOOD PRESSURE FLUCTUATION [None]
  - BLOOD PRESSURE INCREASED [None]
  - DYSPNOEA EXERTIONAL [None]
  - PULMONARY EMBOLISM [None]
